FAERS Safety Report 13332100 (Version 1)
Quarter: 2017Q1

REPORT INFORMATION
  Report Type: Spontaneous
  Country: US (occurrence: US)
  Receive Date: 20170314
  Receipt Date: 20170314
  Transmission Date: 20170428
  Serious: No
  Sender: FDA-Public Use
  Company Number: US-JNJFOC-20170223497

PATIENT
  Age: 36 Month
  Sex: Female
  Weight: 13.61 kg

DRUGS (1)
  1. CHILDRENS TYLENOL [Suspect]
     Active Substance: ACETAMINOPHEN
     Indication: PNEUMONIA
     Route: 048

REACTIONS (2)
  - Product use issue [Unknown]
  - Product contamination [Unknown]

NARRATIVE: CASE EVENT DATE: 20170221
